FAERS Safety Report 22654772 (Version 1)
Quarter: 2023Q2

REPORT INFORMATION
  Report Type: Spontaneous
  Country: US (occurrence: None)
  Receive Date: 20230628
  Receipt Date: 20230628
  Transmission Date: 20230722
  Serious: Yes (Other)
  Sender: FDA-Public Use
  Company Number: None

PATIENT
  Age: 74 Year
  Sex: Female
  Weight: 79.38 kg

DRUGS (14)
  1. KEVZARA [Suspect]
     Active Substance: SARILUMAB
     Indication: Rheumatoid arthritis
     Dosage: 150MG EVERY 2 WEEKS SUBACUTANEOUS?
     Route: 058
     Dates: start: 20230404, end: 20230607
  2. KEVZARA [Suspect]
     Active Substance: SARILUMAB
     Indication: Rheumatoid arthritis
     Dosage: 200MG EVERY 2 WEEKS SUBCUTANEOUS
     Route: 058
     Dates: start: 20230609
  3. IBUPROFEN [Concomitant]
     Active Substance: IBUPROFEN
  4. IPRATROPIUM BROMIDE [Concomitant]
     Active Substance: IPRATROPIUM BROMIDE\IPRATROPIUM BROMIDE ANHYDROUS
  5. PREDNISONE [Concomitant]
     Active Substance: PREDNISONE
  6. HYDROCHLOROTHIAZIDE [Concomitant]
     Active Substance: HYDROCHLOROTHIAZIDE
  7. LABETALOL HYDROCHLORIDE [Concomitant]
     Active Substance: LABETALOL HYDROCHLORIDE
  8. LEVETIRACETAM [Concomitant]
     Active Substance: LEVETIRACETAM
  9. POTASSIUM CHLORIDE [Concomitant]
     Active Substance: POTASSIUM CHLORIDE
  10. PREGABALIN [Concomitant]
     Active Substance: PREGABALIN
  11. TRAZODONE HCL [Concomitant]
     Active Substance: TRAZODONE HYDROCHLORIDE
  12. LINZESS [Concomitant]
     Active Substance: LINACLOTIDE
  13. OZEMPIC [Concomitant]
     Active Substance: SEMAGLUTIDE
  14. MOUNJARO [Concomitant]
     Active Substance: TIRZEPATIDE

REACTIONS (3)
  - Dizziness [None]
  - Blood pressure decreased [None]
  - Fall [None]

NARRATIVE: CASE EVENT DATE: 20230428
